FAERS Safety Report 8367768-3 (Version None)
Quarter: 2012Q2

REPORT INFORMATION
  Report Type: 
  Country: None (occurrence: None)
  Receive Date: 20120517
  Receipt Date: 20120508
  Transmission Date: 20120825
  Serious: Yes (Other)
  Sender: FDA-Public Use
  Company Number: GB-ROCHE-1067055

PATIENT
  Sex: Female
  Weight: 96 kg

DRUGS (2)
  1. AZATHIOPRINE [Concomitant]
     Dates: start: 20101111
  2. MABTHERA [Suspect]
     Indication: RHEUMATOID ARTHRITIS
     Dosage: LAST DOSE PRIOR TO SAE 17/AUG/2011
     Dates: start: 20110119

REACTIONS (1)
  - RENAL IMPAIRMENT [None]
